FAERS Safety Report 5280475-9 (Version None)
Quarter: 2007Q1

REPORT INFORMATION
  Report Type: 
  Country: None (occurrence: None)
  Receive Date: 20061221
  Receipt Date: 20061120
  Transmission Date: 20070707
  Serious: No
  Sender: FDA-Public Use
  Company Number: SP01035

PATIENT
  Sex: Male

DRUGS (1)
  1. XIFAXAN [Suspect]
     Indication: IRRITABLE BOWEL SYNDROME
     Dosage: 400 MG ORAL
     Route: 048

REACTIONS (1)
  - MOUTH ULCERATION [None]
